FAERS Safety Report 4309810-2 (Version None)
Quarter: 2004Q1

REPORT INFORMATION
  Report Type: 
  Country: None (occurrence: None)
  Receive Date: 20040301
  Receipt Date: 20031203
  Transmission Date: 20041129
  Serious: Yes (Hospitalization)
  Sender: FDA-Public Use
  Company Number: US-SHR-03-010101

PATIENT
  Age: 18 Year
  Sex: Female
  Weight: 94.3482 kg

DRUGS (1)
  1. YASMIN [Suspect]
     Indication: POLYCYSTIC OVARIES
     Dosage: 1 TAB, 1X /DAY ORAL
     Route: 048
     Dates: start: 20030326

REACTIONS (2)
  - DEEP VEIN THROMBOSIS [None]
  - VENA CAVA THROMBOSIS [None]
